FAERS Safety Report 19809160 (Version 3)
Quarter: 2022Q1

REPORT INFORMATION
  Report Type: Report from Study
  Country: US (occurrence: US)
  Receive Date: 20210908
  Receipt Date: 20220115
  Transmission Date: 20220423
  Serious: Yes (Hospitalization)
  Sender: FDA-Public Use
  Company Number: US-REGENERON PHARMACEUTICALS, INC.-2021-81735

PATIENT
  Age: 72 Year
  Sex: Female

DRUGS (15)
  1. CASIRIVIMAB\IMDEVIMAB [Suspect]
     Active Substance: CASIRIVIMAB\IMDEVIMAB
     Indication: COVID-19
     Dosage: 1200 MG, SINGLE
     Route: 042
     Dates: start: 20210824, end: 20210824
  2. NORVASC [Concomitant]
     Active Substance: AMLODIPINE BESYLATE
     Indication: Palpitations
     Dosage: 2.5 MG, UNK
     Route: 048
     Dates: end: 20210902
  3. ADVAIR DISKUS [Concomitant]
     Active Substance: FLUTICASONE PROPIONATE\SALMETEROL XINAFOATE
     Indication: Product used for unknown indication
     Dosage: 250-50MCG/DOSE, 1 PUFF BID
     Route: 055
  4. ZYRTEC                             /00884302/ [Concomitant]
     Indication: Product used for unknown indication
     Dosage: 10 MG, QD
     Route: 048
  5. DUPIXENT [Concomitant]
     Active Substance: DUPILUMAB
     Indication: Product used for unknown indication
     Dosage: 300 MG, Q2W
     Route: 058
  6. ZETIA [Concomitant]
     Active Substance: EZETIMIBE
     Indication: Product used for unknown indication
     Dosage: 10 MG, QD
     Route: 048
  7. ATARAX                             /00058401/ [Concomitant]
     Indication: Pruritus
     Dosage: 25 MG EVERY 8 HOURS
     Route: 048
  8. ADVIL                              /00109201/ [Concomitant]
     Indication: Pain
     Dosage: 200 MG EVERY 6 HOURS
     Route: 048
  9. LOPRESSOR [Concomitant]
     Active Substance: METOPROLOL TARTRATE
     Indication: Product used for unknown indication
     Dosage: 50 MG, BID
     Route: 048
  10. NASONEX [Concomitant]
     Active Substance: MOMETASONE FUROATE
     Indication: Product used for unknown indication
     Dosage: 2 SPRAYS BY EACH NARE ROUTE DAILY
     Route: 045
  11. PROAIR HFA [Concomitant]
     Active Substance: ALBUTEROL SULFATE
     Indication: Wheezing
     Dosage: 2 PUFFS (90MCG/ACTUATION INHALER)EVERY 6 HOURS
     Route: 055
  12. PROAIR HFA [Concomitant]
     Active Substance: ALBUTEROL SULFATE
     Indication: Dyspnoea
  13. PHENERGAN                          /00033001/ [Concomitant]
     Indication: Product used for unknown indication
     Dosage: 12.5 MG, AS NECESSARY
     Route: 054
  14. ULTRAM                             /00599202/ [Concomitant]
     Indication: Pain
     Dosage: 50 MG EVERY 6 HOURS
     Route: 048
  15. VALTREX [Concomitant]
     Active Substance: VALACYCLOVIR HYDROCHLORIDE
     Indication: Product used for unknown indication
     Dosage: 500 MG, BID
     Route: 048

REACTIONS (7)
  - Palpitations [Recovering/Resolving]
  - Arrhythmia [Recovering/Resolving]
  - COVID-19 pneumonia [Recovering/Resolving]
  - Heart rate irregular [Recovering/Resolving]
  - Angina pectoris [Recovering/Resolving]
  - Blood pressure decreased [Recovering/Resolving]
  - Dizziness [Recovering/Resolving]

NARRATIVE: CASE EVENT DATE: 20210824
